FAERS Safety Report 18271606 (Version 13)
Quarter: 2021Q3

REPORT INFORMATION
  Report Type: Report from Study
  Country: CN (occurrence: CN)
  Receive Date: 20200916
  Receipt Date: 20210914
  Transmission Date: 20211014
  Serious: Yes (Death, Hospitalization, Disabling)
  Sender: FDA-Public Use
  Company Number: CN-ROCHE-2673283

PATIENT
  Age: 35 Year
  Sex: Female
  Weight: 55 kg

DRUGS (46)
  1. OMEPRAZOLE MAGNESIUM. [Concomitant]
     Active Substance: OMEPRAZOLE MAGNESIUM
     Route: 048
     Dates: start: 20200827, end: 20200910
  2. GLUTATHIONE [Concomitant]
     Active Substance: GLUTATHIONE
     Route: 048
     Dates: start: 20200902, end: 20200904
  3. LEUCOGEN TABLETS [Concomitant]
     Dates: start: 20201209
  4. LANSOPRAZOLE. [Concomitant]
     Active Substance: LANSOPRAZOLE
     Dosage: PROTECT THE STOMACH
     Dates: start: 20201120, end: 20201126
  5. LANSOPRAZOLE. [Concomitant]
     Active Substance: LANSOPRAZOLE
     Dosage: PROTECT THE STOMACH
     Dates: start: 20201210, end: 20201214
  6. LANSOPRAZOLE. [Concomitant]
     Active Substance: LANSOPRAZOLE
     Dosage: PROTECT THE STOMACH
     Dates: start: 20210101, end: 20210107
  7. ONDANSETRON HYDROCHLORIDE. [Concomitant]
     Active Substance: ONDANSETRON HYDROCHLORIDE
     Dosage: PREVENT NAUSEA AND VOMITING
     Dates: start: 20210101, end: 20210106
  8. BETAMETHASONE SODIUM PHOSPHATE [Concomitant]
     Active Substance: BETAMETHASONE SODIUM PHOSPHATE
     Dosage: PREVENT ALLERGIES
     Route: 042
     Dates: start: 20201210, end: 20201210
  9. BEVACIZUMAB. [Suspect]
     Active Substance: BEVACIZUMAB
     Indication: NON-SMALL CELL LUNG CANCER STAGE IV
     Dosage: MOST RECENT DOSE PRIOR TO SERIOUS ADVERSE EVENT ONSET: 26/AUG/2020 (825 MG)
     Route: 042
     Dates: start: 20200826
  10. FOLIC ACID. [Concomitant]
     Active Substance: FOLIC ACID
     Dates: start: 20200819
  11. GLUTATHIONE [Concomitant]
     Active Substance: GLUTATHIONE
     Route: 042
     Dates: start: 20200902, end: 20200904
  12. GLUTATHIONE [Concomitant]
     Active Substance: GLUTATHIONE
     Dates: start: 20200905, end: 20200907
  13. BICYCLOL [Concomitant]
     Active Substance: BICYCLOL
     Dosage: PROTECT LIVER
     Dates: start: 20201014
  14. TROPISETRON HYDROCHLORIDE [Concomitant]
     Active Substance: TROPISETRON HYDROCHLORIDE
     Dosage: PREVENT NAUSEA AND VOMITING
     Dates: start: 20201210, end: 20201210
  15. PLACEBO [Suspect]
     Active Substance: UNSPECIFIED INGREDIENT
     Indication: NON-SMALL CELL LUNG CANCER STAGE IV
     Dosage: MOST RECENT DOSE PRIOR TO SERIOUS ADVERSE EVENT ONSET: 26/AUG/2020
     Route: 042
     Dates: start: 20200826
  16. PEMETREXED. [Suspect]
     Active Substance: PEMETREXED
     Indication: NON-SMALL CELL LUNG CANCER
     Dosage: MOST RECENT DOSE PRIOR TO SERIOUS ADVERSE EVENT ONSET: 26/AUG/2020 (755 MG)
     Route: 042
     Dates: start: 20200826
  17. DEXAMETHASONE ACETATE [Concomitant]
     Active Substance: DEXAMETHASONE ACETATE
     Route: 048
     Dates: start: 20200825, end: 20200825
  18. DEXAMETHASONE ACETATE [Concomitant]
     Active Substance: DEXAMETHASONE ACETATE
     Route: 048
     Dates: start: 20200826, end: 20200827
  19. DEXAMETHASONE ACETATE [Concomitant]
     Active Substance: DEXAMETHASONE ACETATE
     Route: 048
     Dates: start: 20200826, end: 20200826
  20. OMEPRAZOLE MAGNESIUM. [Concomitant]
     Active Substance: OMEPRAZOLE MAGNESIUM
     Route: 048
     Dates: start: 20200825, end: 20200825
  21. DEXAMETHASONE ACETATE [Concomitant]
     Active Substance: DEXAMETHASONE ACETATE
     Dosage: PREVENT ALLERGIES
     Route: 048
     Dates: start: 20201209, end: 20201209
  22. DEXAMETHASONE ACETATE [Concomitant]
     Active Substance: DEXAMETHASONE ACETATE
     Dosage: PREVENT ALLERGIES
     Route: 048
     Dates: start: 20210101, end: 20210101
  23. DIAMMONIUM GLYCYRRHIZINATE [Concomitant]
     Active Substance: HERBALS\DIAMMONIUM GLYCYRRHIZINATE
     Dosage: PROTECT LIVER
     Route: 048
     Dates: start: 20200827, end: 20200901
  24. GLUTATHIONE [Concomitant]
     Active Substance: GLUTATHIONE
     Route: 048
     Dates: start: 20200827, end: 20200901
  25. LEUCOGEN TABLETS [Concomitant]
     Dosage: PREVENT GRANULOCYTOSIS.
     Dates: start: 20201028, end: 20201112
  26. LEUCOGEN TABLETS [Concomitant]
     Dosage: PREVENT GRANULOCYTOSIS
     Dates: start: 20201120, end: 20201205
  27. URSODEOXYCHOLIC ACID [Concomitant]
     Active Substance: URSODIOL
     Dosage: PROTECT LIVER
     Dates: start: 20201014
  28. LANSOPRAZOLE. [Concomitant]
     Active Substance: LANSOPRAZOLE
     Route: 048
     Dates: start: 20201026, end: 20201026
  29. DEXAMETHASONE ACETATE [Concomitant]
     Active Substance: DEXAMETHASONE ACETATE
     Route: 048
     Dates: start: 20200828, end: 20200828
  30. DEXAMETHASONE ACETATE [Concomitant]
     Active Substance: DEXAMETHASONE ACETATE
     Dosage: PREVENT ALLERGIES
     Route: 048
     Dates: start: 20201230, end: 20201231
  31. DIAMMONIUM GLYCYRRHIZINATE [Concomitant]
     Active Substance: HERBALS\DIAMMONIUM GLYCYRRHIZINATE
     Route: 048
     Dates: start: 20200902, end: 20200904
  32. DIAMMONIUM GLYCYRRHIZINATE [Concomitant]
     Active Substance: HERBALS\DIAMMONIUM GLYCYRRHIZINATE
     Route: 048
     Dates: start: 20200906, end: 20200916
  33. LANSOPRAZOLE. [Concomitant]
     Active Substance: LANSOPRAZOLE
     Dosage: PROTECT THE STOMACH
     Dates: start: 20201210, end: 20201210
  34. LEUCOGEN TABLETS [Concomitant]
     Dosage: PREVENT LEUKOPENIA AND THROMBOCYTOPENIA
     Route: 048
     Dates: start: 20200827, end: 20200911
  35. LANSOPRAZOLE. [Concomitant]
     Active Substance: LANSOPRAZOLE
     Dosage: PROTECT THE STOMACH
     Dates: start: 20201028, end: 20201103
  36. CARBOPLATIN. [Suspect]
     Active Substance: CARBOPLATIN
     Indication: NON-SMALL CELL LUNG CANCER
     Dosage: INITIAL TARGET AUC OF 6 MG/ML/MIN?MOST RECENT DOSE PRIOR TO SERIOUS ADVERSE EVENT ONSET: 26/AUG/2020
     Route: 042
     Dates: start: 20200826
  37. DEXAMETHASONE ACETATE [Concomitant]
     Active Substance: DEXAMETHASONE ACETATE
     Route: 048
     Dates: start: 20201028, end: 20201029
  38. DEXAMETHASONE ACETATE [Concomitant]
     Active Substance: DEXAMETHASONE ACETATE
     Dosage: PREVENT ALLERGIES
     Route: 048
     Dates: start: 20201119, end: 20201120
  39. DIAMMONIUM GLYCYRRHIZINATE [Concomitant]
     Active Substance: HERBALS\DIAMMONIUM GLYCYRRHIZINATE
     Route: 042
     Dates: start: 20200902, end: 20200904
  40. GLUTATHIONE [Concomitant]
     Active Substance: GLUTATHIONE
     Dosage: PROTECT LIVER
     Dates: start: 20201028, end: 20201108
  41. GLUTATHIONE [Concomitant]
     Active Substance: GLUTATHIONE
     Dosage: PROTECT LIVER
     Dates: start: 20201120, end: 20201201
  42. ONDANSETRON HYDROCHLORIDE. [Concomitant]
     Active Substance: ONDANSETRON HYDROCHLORIDE
     Dosage: PREVENT NAUSEA AND VOMITING
     Dates: start: 20201028, end: 20201102
  43. ONDANSETRON HYDROCHLORIDE. [Concomitant]
     Active Substance: ONDANSETRON HYDROCHLORIDE
     Dosage: PREVENT NAUSEA AND VOMITING
     Dates: start: 20201210, end: 20201214
  44. DEXAMETHASONE ACETATE [Concomitant]
     Active Substance: DEXAMETHASONE ACETATE
     Dosage: PREVENT ALLERGIES
     Route: 048
     Dates: start: 20201118, end: 20201118
  45. DIAMMONIUM GLYCYRRHIZINATE [Concomitant]
     Active Substance: HERBALS\DIAMMONIUM GLYCYRRHIZINATE
     Dosage: PROTECT LIVER
     Dates: start: 20201028, end: 20201103
  46. ONDANSETRON HYDROCHLORIDE. [Concomitant]
     Active Substance: ONDANSETRON HYDROCHLORIDE
     Dosage: PREVENT NAUSEA AND VOMITING
     Dates: start: 20201120, end: 20201120

REACTIONS (1)
  - Hepatic function abnormal [Recovered/Resolved]

NARRATIVE: CASE EVENT DATE: 20200901
